FAERS Safety Report 7582609-X (Version None)
Quarter: 2011Q2

REPORT INFORMATION
  Report Type: 
  Country: None (occurrence: None)
  Receive Date: 20110630
  Receipt Date: 20110624
  Transmission Date: 20111010
  Serious: Yes (Death, Other)
  Sender: FDA-Public Use
  Company Number: US-ELI_LILLY_AND_COMPANY-US201103002981

PATIENT
  Sex: Male

DRUGS (2)
  1. HUMALOG [Suspect]
     Dosage: 18 U, EACH EVENING
     Route: 058
  2. HUMALOG [Suspect]
     Indication: TYPE 2 DIABETES MELLITUS
     Dosage: UNK, 2/D
     Route: 058

REACTIONS (10)
  - ARTERIOSCLEROSIS CORONARY ARTERY [None]
  - DIABETIC NEUROPATHY [None]
  - INAPPROPRIATE SCHEDULE OF DRUG ADMINISTRATION [None]
  - IRON DEFICIENCY ANAEMIA [None]
  - ANAEMIA OF CHRONIC DISEASE [None]
  - GLYCOSYLATED HAEMOGLOBIN INCREASED [None]
  - MYOCARDIAL ISCHAEMIA [None]
  - GASTROINTESTINAL HAEMORRHAGE [None]
  - PERIPHERAL VASCULAR DISORDER [None]
  - BLOOD GLUCOSE INCREASED [None]
